FAERS Safety Report 13152831 (Version 1)
Quarter: 2017Q1

REPORT INFORMATION
  Report Type: Spontaneous
  Country: US (occurrence: US)
  Receive Date: 20170126
  Receipt Date: 20170126
  Transmission Date: 20170428
  Serious: No
  Sender: FDA-Public Use
  Company Number: US-ASTRAZENECA-2017SE08361

PATIENT
  Age: 775 Month
  Sex: Female
  Weight: 64.4 kg

DRUGS (15)
  1. LOSARTAN POTASSIUM. [Concomitant]
     Active Substance: LOSARTAN POTASSIUM
     Indication: HYPERTENSION
     Route: 048
  2. DAILY VITAMIN [Concomitant]
     Active Substance: VITAMINS
     Indication: SUPPLEMENTATION THERAPY
     Route: 048
  3. METOPROLOL SUCCINATE ER [Suspect]
     Active Substance: METOPROLOL SUCCINATE
     Indication: CARDIAC DISORDER
     Route: 048
  4. METOPROLOL SUCCINATE ER [Suspect]
     Active Substance: METOPROLOL SUCCINATE
     Indication: HYPERTENSION
     Route: 048
  5. ADVIL [Concomitant]
     Active Substance: IBUPROFEN
     Indication: HEADACHE
     Dosage: 400.0MG AS REQUIRED
     Route: 048
  6. ALBUTEROL. [Concomitant]
     Active Substance: ALBUTEROL
     Indication: ASTHMA
     Route: 055
  7. PULMICORT FLEXHALER [Suspect]
     Active Substance: BUDESONIDE
     Indication: ASTHMA
     Dosage: ONE PUFF ONCE DAILY
     Route: 055
     Dates: end: 2016
  8. HYDROCHLOROTHIAZIDE. [Concomitant]
     Active Substance: HYDROCHLOROTHIAZIDE
     Indication: HYPERTENSION
     Route: 048
  9. BENADRYL [Concomitant]
     Active Substance: DIPHENHYDRAMINE HYDROCHLORIDE
     Indication: MULTIPLE ALLERGIES
     Dosage: AS REQUIRED
     Route: 048
  10. OTC NASAL SPRAY [Concomitant]
     Indication: SINUS DISORDER
     Dosage: 1000 DIALY
     Route: 045
  11. ATORVASTATIN [Concomitant]
     Active Substance: ATORVASTATIN
     Indication: BLOOD CHOLESTEROL ABNORMAL
     Route: 048
     Dates: start: 2016
  12. PATADAY [Concomitant]
     Active Substance: OLOPATADINE HYDROCHLORIDE
     Indication: HYPERSENSITIVITY
     Route: 047
  13. PULMICORT FLEXHALER [Suspect]
     Active Substance: BUDESONIDE
     Indication: ASTHMA
     Dosage: 90MCG TWO PUFFS TWICE DAILY
     Route: 055
     Dates: end: 2016
  14. COQ10 [Concomitant]
     Active Substance: UBIDECARENONE
     Indication: SUPPLEMENTATION THERAPY
     Route: 048
     Dates: start: 2016
  15. ZYRTEC [Concomitant]
     Active Substance: CETIRIZINE HYDROCHLORIDE
     Indication: MULTIPLE ALLERGIES
     Dosage: AS REQUIRED
     Route: 048

REACTIONS (6)
  - Intentional product misuse [Recovered/Resolved]
  - Asthma [Recovered/Resolved]
  - Wheezing [Unknown]
  - Visual impairment [Unknown]
  - Lower respiratory tract infection [Unknown]
  - Product use issue [Unknown]

NARRATIVE: CASE EVENT DATE: 201610
